FAERS Safety Report 6019909-0 (Version None)
Quarter: 2008Q4

REPORT INFORMATION
  Report Type: 
  Country: None (occurrence: None)
  Receive Date: 20081223
  Receipt Date: 20081206
  Transmission Date: 20090506
  Serious: Yes (Death)
  Sender: FDA-Public Use
  Company Number: KV200800993

PATIENT
  Age: 79 Year
  Sex: Female

DRUGS (4)
  1. ISOSORBIDE MONONITRATE [Suspect]
     Indication: MYOCARDIAL INFARCTION
     Dosage: 30 MG QD ORAL
     Route: 048
     Dates: start: 20080201, end: 20080703
  2. ISOSORBIDE MONONITRATE [Suspect]
     Indication: MYOCARDIAL INFARCTION
     Dosage: 60 MG QD ORAL
     Route: 048
     Dates: start: 20060101, end: 20080201
  3. METOPROLOL TARTRATE [Concomitant]
  4. UNSPECIFIED MEDICATION [Concomitant]

REACTIONS (5)
  - ASTHENIA [None]
  - BLOOD PRESSURE DECREASED [None]
  - DIALYSIS [None]
  - PRODUCT QUALITY ISSUE [None]
  - RENAL FAILURE [None]
